FAERS Safety Report 23898665 (Version 2)
Quarter: 2024Q3

REPORT INFORMATION
  Report Type: Spontaneous
  Country: US (occurrence: US)
  Receive Date: 20240525
  Receipt Date: 20240709
  Transmission Date: 20241017
  Serious: No
  Sender: DR REDDYS
  Company Number: US-E2BLSMVVAL-SPO/USA/24/0007222

PATIENT
  Age: 74 Year
  Sex: Male

DRUGS (1)
  1. FEXOFENADINE\PSEUDOEPHEDRINE [Suspect]
     Active Substance: FEXOFENADINE\PSEUDOEPHEDRINE
     Indication: Allergic sinusitis
     Route: 065
     Dates: start: 20240504

REACTIONS (2)
  - Drug ineffective [Unknown]
  - Product complaint [Unknown]
